FAERS Safety Report 7579998-9 (Version None)
Quarter: 2011Q2

REPORT INFORMATION
  Report Type: 
  Country: None (occurrence: None)
  Receive Date: 20110629
  Receipt Date: 20110622
  Transmission Date: 20111010
  Serious: Yes (Other)
  Sender: FDA-Public Use
  Company Number: US-JNJFOC-20101208396

PATIENT
  Sex: Male

DRUGS (6)
  1. LEVAQUIN [Suspect]
     Indication: BRONCHITIS
     Route: 065
  2. FLUTICASONE PROPIONATE [Suspect]
     Indication: PRODUCT USED FOR UNKNOWN INDICATION
     Route: 065
  3. METHYLPREDNISOLONE [Suspect]
     Indication: PRODUCT USED FOR UNKNOWN INDICATION
     Route: 065
  4. LEVAQUIN [Suspect]
     Indication: SINUSITIS
     Route: 048
     Dates: start: 20080715, end: 20080724
  5. PREDNISONE [Suspect]
     Indication: PRODUCT USED FOR UNKNOWN INDICATION
     Route: 065
  6. LEVAQUIN [Suspect]
     Route: 065

REACTIONS (3)
  - TENDON RUPTURE [None]
  - ROTATOR CUFF SYNDROME [None]
  - TENOSYNOVITIS [None]
